FAERS Safety Report 12810166 (Version 3)
Quarter: 2016Q4

REPORT INFORMATION
  Report Type: Spontaneous
  Country: JP (occurrence: JP)
  Receive Date: 20161005
  Receipt Date: 20161229
  Transmission Date: 20170207
  Serious: Yes (Other)
  Sender: FDA-Public Use
  Company Number: JP-009507513-1610JPN000056

PATIENT
  Age: 2 Year
  Sex: Male

DRUGS (7)
  1. SINGULAIR [Suspect]
     Active Substance: MONTELUKAST SODIUM
     Dosage: 4 MG, QD
     Route: 048
     Dates: start: 20160920, end: 20160927
  2. CLAVAMOX [Concomitant]
     Active Substance: AMOXICILLIN\CLAVULANATE POTASSIUM
     Indication: OTITIS MEDIA
     Dosage: UNK
     Route: 048
     Dates: start: 20160922
  3. HOKUNALIN [Concomitant]
     Active Substance: TULOBUTEROL
     Dosage: UNK
     Route: 065
  4. MUCODYNE [Concomitant]
     Active Substance: CARBOCYSTEINE
     Dosage: DAILY DOSAGE UNKNOWN
  5. MUCODYNE [Concomitant]
     Active Substance: CARBOCYSTEINE
     Dosage: UNK
     Route: 065
  6. SINGULAIR [Suspect]
     Active Substance: MONTELUKAST SODIUM
     Dosage: 4 MG, QD
     Route: 048
     Dates: start: 20160812, end: 20160814
  7. HOKUNALIN [Concomitant]
     Active Substance: TULOBUTEROL
     Dosage: DAILY DOSE UNKNOWN

REACTIONS (4)
  - Haematochezia [Recovered/Resolved]
  - Otitis media [Recovered/Resolved]
  - Respiratory syncytial virus infection [Recovered/Resolved]
  - Anal fissure [Recovering/Resolving]

NARRATIVE: CASE EVENT DATE: 20160814
